FAERS Safety Report 9189646 (Version 3)
Quarter: 2013Q2

REPORT INFORMATION
  Report Type: Spontaneous
  Country: US (occurrence: US)
  Receive Date: 20130326
  Receipt Date: 20130419
  Transmission Date: 20140414
  Serious: Yes (Other)
  Sender: FDA-Public Use
  Company Number: US-JNJFOC-20130312392

PATIENT
  Sex: Female

DRUGS (1)
  1. BENADRYL [Suspect]
     Indication: DYSPNOEA
     Route: 048

REACTIONS (5)
  - Dyspnoea [Unknown]
  - Swollen tongue [Unknown]
  - Dysphagia [Unknown]
  - Chest pain [Unknown]
  - Off label use [Unknown]
